FAERS Safety Report 12118255 (Version 1)
Quarter: 2016Q1

REPORT INFORMATION
  Report Type: Spontaneous
  Country: PL (occurrence: PL)
  Receive Date: 20160226
  Receipt Date: 20160226
  Transmission Date: 20160526
  Serious: Yes (Other)
  Sender: FDA-Public Use
  Company Number: PL-TEVA-636438ACC

PATIENT
  Age: 46 Year
  Sex: Male
  Weight: 108 kg

DRUGS (1)
  1. DACARBAZIN TEVA [Suspect]
     Active Substance: DACARBAZINE
     Indication: ADRENAL GLAND CANCER
     Dosage: 1600 MILLIGRAM DAILY;
     Route: 042
     Dates: start: 20140922, end: 20140922

REACTIONS (1)
  - Hepatic failure [Recovering/Resolving]

NARRATIVE: CASE EVENT DATE: 20141013
